FAERS Safety Report 4536202-3 (Version None)
Quarter: 2004Q4

REPORT INFORMATION
  Report Type: 
  Country: None (occurrence: None)
  Receive Date: 20041223
  Receipt Date: 20041209
  Transmission Date: 20050328
  Serious: Yes (Death, Hospitalization)
  Sender: FDA-Public Use
  Company Number: FR-GLAXOSMITHKLINE-B0360023A

PATIENT
  Age: 36 Year
  Sex: Male
  Weight: 80 kg

DRUGS (9)
  1. COMBIVIR [Suspect]
     Indication: HIV INFECTION
     Route: 048
     Dates: end: 20041001
  2. KALETRA [Suspect]
     Indication: HIV INFECTION
     Route: 048
     Dates: end: 20041001
  3. REBETOL [Suspect]
     Indication: HEPATITIS B
     Dosage: 1000MG PER DAY
     Route: 048
     Dates: end: 20041001
  4. ALPHA 2B INTERFERON [Suspect]
     Indication: HEPATITIS B
     Dosage: 120MCG PER DAY
     Route: 058
     Dates: start: 20040930
  5. SUBUTEX [Suspect]
     Dosage: 8MG PER DAY
     Route: 048
     Dates: end: 20041001
  6. NEURONTIN [Suspect]
     Dosage: 400MG THREE TIMES PER DAY
     Route: 048
     Dates: end: 20041001
  7. ZECLAR [Suspect]
     Route: 065
  8. MINOCYCLINE HCL [Suspect]
     Route: 065
  9. ALDACTONE [Suspect]
     Route: 065

REACTIONS (2)
  - HEPATIC ENCEPHALOPATHY [None]
  - LIVER DISORDER [None]
